FAERS Safety Report 8960825 (Version 1)
Quarter: 2012Q4

REPORT INFORMATION
  Report Type: 
  Country: NL (occurrence: NL)
  Receive Date: 20121212
  Receipt Date: 20121212
  Transmission Date: 20130627
  Serious: Yes (Hospitalization)
  Sender: FDA-Public Use
  Company Number: NL-PFIZER INC-2012308689

PATIENT
  Age: 67 Year
  Sex: Female
  Weight: 75 kg

DRUGS (6)
  1. GENOTROPIN [Suspect]
     Dosage: 0.4 mg, 1x/day,7 injections/week
     Route: 058
     Dates: start: 20030509
  2. DESMOPRESSIN [Concomitant]
     Indication: ADH DECREASED
     Dosage: UNK
     Dates: start: 19890101
  3. GLUCOPHAGE ^ARON^ [Concomitant]
     Indication: IDDM
     Dosage: UNK
     Dates: start: 19980415, end: 20031007
  4. GLUCOPHAGE ^ARON^ [Concomitant]
     Indication: NIDDM
  5. METFORMIN [Concomitant]
     Indication: IDDM
     Dosage: UNK
     Dates: start: 20031008
  6. METFORMIN [Concomitant]
     Indication: NIDDM

REACTIONS (1)
  - Angiopathy [Unknown]
